FAERS Safety Report 23139288 (Version 1)
Quarter: 2023Q4

REPORT INFORMATION
  Report Type: Spontaneous
  Country: US (occurrence: None)
  Receive Date: 20231101
  Receipt Date: 20231101
  Transmission Date: 20240109
  Serious: No
  Sender: FDA-Public Use
  Company Number: None

PATIENT
  Age: 33 Year
  Sex: Male

DRUGS (1)
  1. CABOTEGRAVIR [Suspect]
     Active Substance: CABOTEGRAVIR
     Indication: Prophylaxis against HIV infection
     Dosage: OTHER FREQUENCY : EVERY 2 MONTHS;?
     Route: 030
     Dates: start: 20230815

REACTIONS (4)
  - Rash [None]
  - Rash [None]
  - Rash [None]
  - Rash erythematous [None]

NARRATIVE: CASE EVENT DATE: 20230916
